FAERS Safety Report 5191171-0 (Version None)
Quarter: 2006Q4

REPORT INFORMATION
  Report Type: 
  Country: None (occurrence: None)
  Receive Date: 20061220
  Receipt Date: 20061220
  Transmission Date: 20070319
  Serious: Yes (Hospitalization)
  Sender: FDA-Public Use
  Company Number: None

PATIENT
  Age: 63 Year
  Sex: Female
  Weight: 108 kg

DRUGS (22)
  1. ENOXAPARIN SODIUM [Suspect]
     Indication: DEEP VEIN THROMBOSIS
     Dosage: 110 MG SQ Q12H
     Route: 058
     Dates: start: 20060703, end: 20060711
  2. ENOXAPARIN SODIUM [Suspect]
     Indication: PULMONARY EMBOLISM
     Dosage: 110 MG SQ Q12H
     Route: 058
     Dates: start: 20060703, end: 20060711
  3. ENOXAPARIN SODIUM [Suspect]
     Indication: DEEP VEIN THROMBOSIS
     Dosage: 110 MG SQ Q12H
     Route: 058
     Dates: start: 20060717, end: 20060718
  4. ENOXAPARIN SODIUM [Suspect]
     Indication: PULMONARY EMBOLISM
     Dosage: 110 MG SQ Q12H
     Route: 058
     Dates: start: 20060717, end: 20060718
  5. WARFARIN SODIUM [Suspect]
     Indication: DEEP VEIN THROMBOSIS
     Dosage: PO DAILY (SLIDING DOSE)
     Route: 048
     Dates: start: 20060703, end: 20060713
  6. WARFARIN SODIUM [Suspect]
     Indication: PULMONARY EMBOLISM
     Dosage: PO DAILY (SLIDING DOSE)
     Route: 048
     Dates: start: 20060703, end: 20060713
  7. WARFARIN SODIUM [Suspect]
     Indication: DEEP VEIN THROMBOSIS
     Dosage: PO DAILY (SLIDING DOSE)
     Route: 048
     Dates: start: 20060710
  8. WARFARIN SODIUM [Suspect]
     Indication: PULMONARY EMBOLISM
     Dosage: PO DAILY (SLIDING DOSE)
     Route: 048
     Dates: start: 20060710
  9. ALLOPURINOL SODIUM [Concomitant]
  10. DILTIAZEM HCL [Concomitant]
  11. EPOGEN [Concomitant]
  12. LEXAPRO [Concomitant]
  13. PEPCID [Concomitant]
  14. FENTANYL TRANSDERMAL SYSTEM [Concomitant]
  15. ADVAIR DISKUS 100/50 [Concomitant]
  16. GABAPENTIN [Concomitant]
  17. HYDRALAZINE HCL [Concomitant]
  18. INSULIN [Concomitant]
  19. FLAGYL [Concomitant]
  20. PRAVASTATIN [Concomitant]
  21. OS CAL [Concomitant]
  22. LEVAQUIN [Concomitant]

REACTIONS (4)
  - DEEP VEIN THROMBOSIS [None]
  - GROIN PAIN [None]
  - HAEMATOMA [None]
  - PULMONARY EMBOLISM [None]
